FAERS Safety Report 13342160 (Version 1)
Quarter: 2017Q1

REPORT INFORMATION
  Report Type: Spontaneous
  Country: AU (occurrence: AU)
  Receive Date: 20170316
  Receipt Date: 20170316
  Transmission Date: 20170428
  Serious: Yes (Congenital Anomaly, Other)
  Sender: FDA-Public Use
  Company Number: AU-PFIZER INC-2017111749

PATIENT
  Sex: Female

DRUGS (4)
  1. TRANYLCYPROMINE [Interacting]
     Active Substance: TRANYLCYPROMINE
     Dosage: UNK, DAILY (100-120 MG DAILY)
     Route: 064
  2. ALPRAZOLAM. [Suspect]
     Active Substance: ALPRAZOLAM
     Dosage: UNK, DAILY (1-2 MG DAILY)
     Route: 064
  3. DIAZEPAM. [Interacting]
     Active Substance: DIAZEPAM
     Dosage: UNK, DAILY (5-10 MG DAILY)
     Route: 064
  4. PIMOZIDE. [Interacting]
     Active Substance: PIMOZIDE
     Dosage: UNK, DAILY (1-2 MG)
     Route: 064

REACTIONS (14)
  - Foetal growth restriction [Unknown]
  - Patent ductus arteriosus [Unknown]
  - Deafness neurosensory [Unknown]
  - Craniosynostosis [Unknown]
  - Drug interaction [Unknown]
  - Atrioventricular septal defect [Unknown]
  - Exposure during breast feeding [Recovered/Resolved]
  - Congenital central nervous system anomaly [Unknown]
  - Developmental delay [Unknown]
  - Respiratory distress [Unknown]
  - Dysmorphism [Unknown]
  - Hydrocephalus [Unknown]
  - Abdominal distension [Recovered/Resolved]
  - Maternal exposure during pregnancy [Unknown]
